FAERS Safety Report 7926602-3 (Version None)
Quarter: 2011Q4

REPORT INFORMATION
  Report Type: 
  Country: None (occurrence: None)
  Receive Date: 20111118
  Receipt Date: 20111108
  Transmission Date: 20120403
  Serious: No
  Sender: FDA-Public Use
  Company Number: US-BIOGENIDEC-2011BI032518

PATIENT
  Age: 34 Year
  Sex: Female

DRUGS (2)
  1. AVONEX [Suspect]
     Indication: MULTIPLE SCLEROSIS
     Route: 030
     Dates: start: 20091114, end: 20100401
  2. AVONEX [Suspect]
     Route: 030
     Dates: start: 20101113

REACTIONS (7)
  - HYPERSENSITIVITY [None]
  - DRY THROAT [None]
  - INJECTION SITE MASS [None]
  - HYPERTENSION [None]
  - DYSPNOEA [None]
  - APHAGIA [None]
  - PHARYNGEAL OEDEMA [None]
